FAERS Safety Report 4690488-3 (Version None)
Quarter: 2005Q2

REPORT INFORMATION
  Report Type: 
  Country: None (occurrence: None)
  Receive Date: 20050613
  Receipt Date: 20050530
  Transmission Date: 20051028
  Serious: Yes (Death, Hospitalization, Other)
  Sender: FDA-Public Use
  Company Number: 2005081843

PATIENT
  Age: 83 Year
  Sex: Female

DRUGS (9)
  1. FRAGMIN [Suspect]
     Indication: ILL-DEFINED DISORDER
     Dosage: 5000 I.U. (1 D), PARENTERAL
     Route: 051
     Dates: start: 20040929, end: 20041110
  2. WARFARIN SODIUM [Suspect]
     Indication: ATRIAL FIBRILLATION
     Dosage: 2.5 MG (2.5 MG, 1 IN 1 D), ORAL
     Route: 048
     Dates: end: 20041013
  3. ALVEDON (PARACETAMOL) [Concomitant]
  4. LANACRIST (DIGOXIN) [Concomitant]
  5. LEVAXIN (LEVOTHYROXINE SODIUM) [Concomitant]
  6. LASIX RETARD (FUROSEMIDE) [Concomitant]
  7. PLENDIL [Concomitant]
  8. ATENOLOL [Concomitant]
  9. NOVOMIX (INSULIN ASPART) [Concomitant]

REACTIONS (27)
  - ARTERIOSCLEROSIS [None]
  - BLOOD BLISTER [None]
  - BRONCHITIS [None]
  - CARDIOMEGALY [None]
  - CEREBRAL INFARCTION [None]
  - CONFUSIONAL STATE [None]
  - CORONARY ARTERY ATHEROSCLEROSIS [None]
  - FALL [None]
  - FEMUR FRACTURE [None]
  - GANGRENE [None]
  - GENERAL PHYSICAL HEALTH DETERIORATION [None]
  - HYDROTHORAX [None]
  - INJECTION SITE NECROSIS [None]
  - INJECTION SITE VESICLES [None]
  - LEG AMPUTATION [None]
  - MULTI-ORGAN FAILURE [None]
  - MYOCARDIAL INFARCTION [None]
  - PERIPHERAL EMBOLISM [None]
  - PNEUMONIA [None]
  - POOR PERIPHERAL CIRCULATION [None]
  - POST PROCEDURAL COMPLICATION [None]
  - PULMONARY INFARCTION [None]
  - PULMONARY OEDEMA [None]
  - PULSE ABSENT [None]
  - RENAL DISORDER [None]
  - SHOCK [None]
  - VASCULITIS NECROTISING [None]
